FAERS Safety Report 8843513 (Version 1)
Quarter: 2012Q4

REPORT INFORMATION
  Report Type: 
  Country: GB (occurrence: GB)
  Receive Date: 20121016
  Receipt Date: 20121016
  Transmission Date: 20130627
  Serious: Yes (Other)
  Sender: FDA-Public Use
  Company Number: GB-PFIZER INC-2012253105

PATIENT
  Age: 52 Year
  Sex: Female

DRUGS (3)
  1. PREGABALIN [Suspect]
     Indication: NEURALGIA
     Dosage: 25 mg, 2x/day
     Route: 048
     Dates: start: 20120712, end: 20120727
  2. OXCARBAZEPINE [Suspect]
     Indication: NEURALGIA
     Dosage: 600mg morning + 900mg night.
     Route: 048
     Dates: start: 20120206
  3. OXCARBAZEPINE [Suspect]
     Dosage: 600mg morning and 750mg night

REACTIONS (1)
  - Cutaneous lupus erythematosus [Recovering/Resolving]
